FAERS Safety Report 5707323-4 (Version None)
Quarter: 2008Q2

REPORT INFORMATION
  Report Type: 
  Country: None (occurrence: None)
  Receive Date: 20080416
  Receipt Date: 20080403
  Transmission Date: 20081010
  Serious: Yes (Hospitalization)
  Sender: FDA-Public Use
  Company Number: US-AMGEN-US272896

PATIENT
  Sex: Female
  Weight: 118.9 kg

DRUGS (12)
  1. PROCRIT [Suspect]
     Indication: ANAEMIA
     Dates: start: 20080305
  2. LISINOPRIL [Concomitant]
  3. ALLOPURINOL [Concomitant]
  4. LANTUS [Concomitant]
  5. GLYBURIDE AND METFORMIN HCL [Concomitant]
  6. PANTOPRAZOLE SODIUM [Concomitant]
  7. KLONOPIN [Concomitant]
  8. FUROSEMIDE [Concomitant]
  9. PROPRANOLOL [Concomitant]
  10. POTASSIUM CHLORIDE [Concomitant]
  11. ZOLOFT [Concomitant]
  12. IRON [Concomitant]

REACTIONS (1)
  - HOSPITALISATION [None]
